FAERS Safety Report 25202701 (Version 1)
Quarter: 2025Q2

REPORT INFORMATION
  Report Type: Spontaneous
  Country: US (occurrence: US)
  Receive Date: 20250416
  Receipt Date: 20250416
  Transmission Date: 20250717
  Serious: Yes (Life-Threatening, Hospitalization)
  Sender: MYLAN
  Company Number: US-MYLANLABS-2025M1031729

PATIENT
  Age: 21 Year
  Sex: Male

DRUGS (15)
  1. NOREPINEPHRINE [Suspect]
     Active Substance: NOREPINEPHRINE
     Indication: Cardiac failure congestive
  2. NOREPINEPHRINE [Suspect]
     Active Substance: NOREPINEPHRINE
     Indication: Pulmonary hypertension
  3. NOREPINEPHRINE [Suspect]
     Active Substance: NOREPINEPHRINE
     Indication: Cardiogenic shock
  4. EPOPROSTENOL [Suspect]
     Active Substance: EPOPROSTENOL
     Indication: Cardiac failure congestive
  5. EPOPROSTENOL [Suspect]
     Active Substance: EPOPROSTENOL
     Indication: Pulmonary hypertension
  6. EPOPROSTENOL [Suspect]
     Active Substance: EPOPROSTENOL
     Indication: Cardiogenic shock
  7. BUMETANIDE [Suspect]
     Active Substance: BUMETANIDE
     Indication: Cardiac failure congestive
  8. BUMETANIDE [Suspect]
     Active Substance: BUMETANIDE
     Indication: Pulmonary hypertension
  9. BUMETANIDE [Suspect]
     Active Substance: BUMETANIDE
     Indication: Cardiogenic shock
  10. VASOPRESSIN [Suspect]
     Active Substance: VASOPRESSIN
     Indication: Cardiac failure congestive
  11. VASOPRESSIN [Suspect]
     Active Substance: VASOPRESSIN
     Indication: Pulmonary hypertension
  12. VASOPRESSIN [Suspect]
     Active Substance: VASOPRESSIN
     Indication: Cardiogenic shock
  13. DOBUTAMINE [Suspect]
     Active Substance: DOBUTAMINE HYDROCHLORIDE
     Indication: Cardiac failure congestive
  14. DOBUTAMINE [Suspect]
     Active Substance: DOBUTAMINE HYDROCHLORIDE
     Indication: Pulmonary hypertension
  15. DOBUTAMINE [Suspect]
     Active Substance: DOBUTAMINE HYDROCHLORIDE
     Indication: Cardiogenic shock

REACTIONS (1)
  - Drug ineffective [Unknown]
